FAERS Safety Report 19368044 (Version 1)
Quarter: 2021Q2

REPORT INFORMATION
  Report Type: Spontaneous
  Country: ES (occurrence: ES)
  Receive Date: 20210603
  Receipt Date: 20210603
  Transmission Date: 20210717
  Serious: Yes (Hospitalization)
  Sender: FDA-Public Use
  Company Number: ES-ELI_LILLY_AND_COMPANY-ES202105012432

PATIENT
  Age: 12 Year
  Sex: Female

DRUGS (2)
  1. OLANZAPINE. [Suspect]
     Active Substance: OLANZAPINE
     Indication: AGITATION
     Dosage: 10 MG, UNKNOWN
     Route: 030
     Dates: start: 20210508, end: 20210509
  2. DIAZEPAM. [Interacting]
     Active Substance: DIAZEPAM
     Indication: AGITATION
     Dosage: 5 MG, DROP BY DROP
     Route: 042
     Dates: start: 20210508

REACTIONS (3)
  - Slow speech [Recovering/Resolving]
  - Drug interaction [Unknown]
  - Ataxia [Recovering/Resolving]

NARRATIVE: CASE EVENT DATE: 20210510
